FAERS Safety Report 6177737-X (Version None)
Quarter: 2009Q2

REPORT INFORMATION
  Report Type: 
  Country: None (occurrence: None)
  Receive Date: 20090501
  Receipt Date: 20090501
  Transmission Date: 20091009
  Serious: Yes (Life-Threatening)
  Sender: FDA-Public Use
  Company Number: None

PATIENT
  Age: 24 Year
  Sex: Female
  Weight: 53 kg

DRUGS (6)
  1. DROTRECOGIN ALPHA [Suspect]
     Indication: SEPSIS
     Dosage: 24 MCG/KG/HR IV
     Route: 042
     Dates: start: 20090126, end: 20090128
  2. CEFTRIAXONE [Concomitant]
  3. CASPOFUNGIN [Concomitant]
  4. ACYCLOVIR [Concomitant]
  5. RANITIDINE [Concomitant]
  6. HYDROCORTISONE [Concomitant]

REACTIONS (3)
  - COMA [None]
  - MENTAL STATUS CHANGES [None]
  - SUBARACHNOID HAEMORRHAGE [None]
